FAERS Safety Report 19080056 (Version 2)
Quarter: 2021Q2

REPORT INFORMATION
  Report Type: Report from Study
  Country: DK (occurrence: DK)
  Receive Date: 20210401
  Receipt Date: 20210601
  Transmission Date: 20210717
  Serious: Yes (Hospitalization)
  Sender: FDA-Public Use
  Company Number: DK-JNJFOC-20210353617

PATIENT
  Age: 17 Year
  Sex: Female
  Weight: 45.5 kg

DRUGS (2)
  1. INFLIXIMAB, RECOMBINANT [Suspect]
     Active Substance: INFLIXIMAB
     Indication: CROHN^S DISEASE
     Route: 042
     Dates: start: 20120713, end: 20130201
  2. SIMPONI [Concomitant]
     Active Substance: GOLIMUMAB
     Dates: start: 20180926

REACTIONS (1)
  - Gastroenteritis salmonella [Recovered/Resolved with Sequelae]

NARRATIVE: CASE EVENT DATE: 20210320
